FAERS Safety Report 20993875 (Version 2)
Quarter: 2022Q4

REPORT INFORMATION
  Report Type: Report from Study
  Country: US (occurrence: US)
  Receive Date: 20220622
  Receipt Date: 20221104
  Transmission Date: 20230112
  Serious: Yes (Hospitalization)
  Sender: FDA-Public Use
  Company Number: US-UCBSA-2022034016

PATIENT
  Sex: Female

DRUGS (3)
  1. LACOSAMIDE [Suspect]
     Active Substance: LACOSAMIDE
     Indication: Seizure
     Dosage: 50MG 2TABS QAM, 3TABS QPM AND 1 XTRA TAB DURING CYCLE
     Dates: start: 2017
  2. LACOSAMIDE [Suspect]
     Active Substance: LACOSAMIDE
     Indication: Epilepsy
     Dosage: 50MG-1 TABLET QAM,2 QPM 1 WEEK OF MENSTRUAL CYCLE
  3. INFLUENZA VIRUS VACCINE [Suspect]
     Active Substance: INFLUENZA VIRUS VACCINE
     Indication: Product used for unknown indication
     Dosage: UNK

REACTIONS (5)
  - Febrile convulsion [Recovered/Resolved]
  - Allergy to vaccine [Recovered/Resolved]
  - Influenza [Unknown]
  - Pyrexia [Unknown]
  - Product use issue [Unknown]

NARRATIVE: CASE EVENT DATE: 20170101
